FAERS Safety Report 19504960 (Version 1)
Quarter: 2021Q3

REPORT INFORMATION
  Report Type: Spontaneous
  Country: US (occurrence: US)
  Receive Date: 20210707
  Receipt Date: 20210707
  Transmission Date: 20211014
  Serious: No
  Sender: FDA-Public Use
  Company Number: US-SA-2021SA217556

PATIENT
  Age: 16 Year
  Sex: Male

DRUGS (6)
  1. BENADRYL [Concomitant]
     Active Substance: DIPHENHYDRAMINE HYDROCHLORIDE
  2. EUCRISA [Concomitant]
     Active Substance: CRISABOROLE
  3. ALLEGRA [Concomitant]
     Active Substance: FEXOFENADINE HYDROCHLORIDE
  4. MOTRIN [Concomitant]
     Active Substance: IBUPROFEN
  5. CLARITIN [Concomitant]
     Active Substance: LORATADINE
  6. DUPIXENT [Suspect]
     Active Substance: DUPILUMAB
     Indication: DERMATITIS ATOPIC
     Dosage: 300 MG, QOW
     Route: 058
     Dates: start: 20210224

REACTIONS (6)
  - Pain of skin [Unknown]
  - Rash [Unknown]
  - Therapeutic response decreased [Unknown]
  - Product use issue [Unknown]
  - Pruritus [Unknown]
  - Stress [Unknown]

NARRATIVE: CASE EVENT DATE: 20210224
